FAERS Safety Report 15240451 (Version 1)
Quarter: 2018Q3

REPORT INFORMATION
  Report Type: Spontaneous
  Country: ES (occurrence: ES)
  Receive Date: 20180804
  Receipt Date: 20180804
  Transmission Date: 20181010
  Serious: Yes (Hospitalization, Other)
  Sender: FDA-Public Use
  Company Number: ES-AUROBINDO-AUR-APL-2018-038987

PATIENT
  Age: 56 Year

DRUGS (2)
  1. RISPERIDONE. [Suspect]
     Active Substance: RISPERIDONE
     Indication: SCHIZOPHRENIA
     Dosage: 4 MILLIGRAM, DOSAGE FORM: UNSPECIFIED
     Route: 048
  2. ABILIFY MAINTENA [Suspect]
     Active Substance: ARIPIPRAZOLE
     Indication: SCHIZOPHRENIA
     Dosage: 400 MILLIGRAM, EVERY MONTH
     Route: 030

REACTIONS (2)
  - Treatment noncompliance [Unknown]
  - Schizophrenia [Recovered/Resolved with Sequelae]

NARRATIVE: CASE EVENT DATE: 20160817
